FAERS Safety Report 12911819 (Version 1)
Quarter: 2016Q4

REPORT INFORMATION
  Report Type: Spontaneous
  Country: BR (occurrence: BR)
  Receive Date: 20161104
  Receipt Date: 20161104
  Transmission Date: 20170207
  Serious: Yes (Hospitalization)
  Sender: FDA-Public Use
  Company Number: BR-BAYER-2016-208776

PATIENT
  Sex: Female

DRUGS (1)
  1. AVALOX [Suspect]
     Active Substance: MOXIFLOXACIN HYDROCHLORIDE
     Indication: PNEUMONIA
     Dosage: 400 MG, QD
     Dates: start: 20161017, end: 20161019

REACTIONS (1)
  - Pneumonia [Recovered/Resolved]
